FAERS Safety Report 11097675 (Version 1)
Quarter: 2015Q2

REPORT INFORMATION
  Report Type: Spontaneous
  Country: US (occurrence: None)
  Receive Date: 20150507
  Receipt Date: 20150507
  Transmission Date: 20150821
  Serious: No
  Sender: FDA-Public Use
  Company Number: None

PATIENT
  Age: 53 Year
  Sex: Female
  Weight: 59.42 kg

DRUGS (2)
  1. ESTRADIOL. [Suspect]
     Active Substance: ESTRADIOL
     Indication: MENOPAUSE
     Dosage: 0.0375 2 X WEEK TRANSDERMAL
     Route: 062
     Dates: start: 20150113, end: 20150421
  2. PROGESTERONE. [Concomitant]
     Active Substance: PROGESTERONE

REACTIONS (5)
  - Application site erythema [None]
  - Fatigue [None]
  - Application site pruritus [None]
  - Menopausal symptoms [None]
  - Night sweats [None]

NARRATIVE: CASE EVENT DATE: 20150113
